FAERS Safety Report 13039940 (Version 4)
Quarter: 2017Q1

REPORT INFORMATION
  Report Type: Spontaneous
  Country: US (occurrence: US)
  Receive Date: 20161219
  Receipt Date: 20170111
  Transmission Date: 20170428
  Serious: Yes (Other)
  Sender: FDA-Public Use
  Company Number: US-SANOFI-AVENTIS-2012SA089160

PATIENT
  Age: 70 Year
  Sex: Female

DRUGS (4)
  1. SOLOSTAR [Suspect]
     Active Substance: DEVICE
     Indication: TYPE 1 DIABETES MELLITUS
  2. LANTUS SOLOSTAR [Suspect]
     Active Substance: INSULIN GLARGINE
     Indication: TYPE 1 DIABETES MELLITUS
     Dosage: USES 10-12 UNITS, OR 13 OF THE LANTUS SOLOSTAR PRODUCT AT NIGHT DEPENDING ON WHAT HER SCALE SAYS
     Route: 058
  3. SOLOSTAR [Suspect]
     Active Substance: DEVICE
     Indication: TYPE 1 DIABETES MELLITUS
  4. LANTUS SOLOSTAR [Suspect]
     Active Substance: INSULIN GLARGINE
     Indication: TYPE 1 DIABETES MELLITUS
     Dosage: USES 10-12 UNITS, OR 13 OF THE LANTUS SOLOSTAR PRODUCT AT NIGHT DEPENDING ON WHAT HER SCALE SAYS
     Route: 058

REACTIONS (4)
  - Device issue [Unknown]
  - Hyperglycaemia [Not Recovered/Not Resolved]
  - Blindness unilateral [Unknown]
  - Blood glucose increased [Unknown]

NARRATIVE: CASE EVENT DATE: 2013
